FAERS Safety Report 17016249 (Version 1)
Quarter: 2019Q4

REPORT INFORMATION
  Report Type: Spontaneous
  Country: IL (occurrence: IL)
  Receive Date: 20191111
  Receipt Date: 20191111
  Transmission Date: 20200122
  Serious: Yes (Hospitalization)
  Sender: FDA-Public Use
  Company Number: IL-CELLTRION INC.-2019IL026134

PATIENT

DRUGS (4)
  1. LORASTINE [Concomitant]
     Active Substance: LORATADINE
     Dosage: 10 MILLIGRAM
  2. REMSIMA [Suspect]
     Active Substance: INFLIXIMAB
     Indication: RHEUMATOID ARTHRITIS
     Dosage: 300 MILLIGRAM
  3. SALINE [SODIUM CHLORIDE] [Concomitant]
     Active Substance: SODIUM CHLORIDE
     Dosage: 1000 ML
  4. HYDROCORTISON [HYDROCORTISONE] [Concomitant]
     Dosage: 100 MILLIGRAM

REACTIONS (3)
  - Dyspnoea [Unknown]
  - Presyncope [Unknown]
  - Erythema [Unknown]
